FAERS Safety Report 20967770 (Version 1)
Quarter: 2022Q2

REPORT INFORMATION
  Report Type: Report from Study
  Country: US (occurrence: US)
  Receive Date: 20220616
  Receipt Date: 20220616
  Transmission Date: 20220721
  Serious: Yes (Other)
  Sender: FDA-Public Use
  Company Number: US-BRISTOL-MYERS SQUIBB COMPANY-2022-054114

PATIENT
  Sex: Female

DRUGS (1)
  1. ELIQUIS [Suspect]
     Active Substance: APIXABAN
     Indication: Hip arthroplasty
     Route: 065

REACTIONS (4)
  - Back disorder [Unknown]
  - Thrombosis [Unknown]
  - COVID-19 [Unknown]
  - Procedural pain [Unknown]

NARRATIVE: CASE EVENT DATE: 20200101
